FAERS Safety Report 9046190 (Version 1)
Quarter: 2013Q1

REPORT INFORMATION
  Report Type: Spontaneous
  Country: GB (occurrence: GB)
  Receive Date: 20130201
  Receipt Date: 20130201
  Transmission Date: 20140127
  Serious: Yes (Other)
  Sender: FDA-Public Use
  Company Number: PHFR2013GB000892

PATIENT
  Sex: Female

DRUGS (3)
  1. CARBAMAZEPINE [Suspect]
     Indication: EPILEPSY
     Dosage: UNK
  2. CARBAMAZEPINE [Suspect]
     Indication: EPILEPSY
     Dosage: 600 MG, DAILY
  3. CARBAMAZEPINE [Suspect]
     Dosage: 200 MG, TID

REACTIONS (3)
  - Visual acuity reduced [Unknown]
  - Feeling abnormal [Unknown]
  - Hypersomnia [Unknown]
